FAERS Safety Report 7233107-4 (Version None)
Quarter: 2011Q1

REPORT INFORMATION
  Report Type: 
  Country: None (occurrence: None)
  Receive Date: 20110106
  Receipt Date: 20101221
  Transmission Date: 20110831
  Serious: Yes (Hospitalization, Other)
  Sender: FDA-Public Use
  Company Number: 2010004657

PATIENT
  Age: 56 Year
  Sex: Male

DRUGS (1)
  1. TARCEVA [Suspect]
     Indication: LUNG NEOPLASM MALIGNANT
     Dosage: 150 MG, 3 TIMES A WEEK, ORAL
     Route: 048
     Dates: start: 20100211

REACTIONS (7)
  - DUODENAL ULCER [None]
  - OBSTRUCTION GASTRIC [None]
  - DIABETES MELLITUS [None]
  - CLOSTRIDIUM DIFFICILE COLITIS [None]
  - PULMONARY EMBOLISM [None]
  - ANAEMIA [None]
  - DEEP VEIN THROMBOSIS [None]
